FAERS Safety Report 24206423 (Version 1)
Quarter: 2024Q3

REPORT INFORMATION
  Report Type: Spontaneous
  Country: IT (occurrence: None)
  Receive Date: 20240813
  Receipt Date: 20240813
  Transmission Date: 20241016
  Serious: Yes (Hospitalization, Disabling, Other)
  Sender: ASTRAZENECA
  Company Number: 2024A179128

PATIENT
  Age: 18708 Day
  Sex: Male
  Weight: 80 kg

DRUGS (1)
  1. TEZEPELUMAB [Suspect]
     Active Substance: TEZEPELUMAB
     Indication: Asthma
     Route: 058
     Dates: start: 20240219

REACTIONS (2)
  - Hemiparesis [Recovered/Resolved with Sequelae]
  - Cerebral ischaemia [Recovered/Resolved with Sequelae]

NARRATIVE: CASE EVENT DATE: 20240725
